FAERS Safety Report 7048574-9 (Version None)
Quarter: 2010Q4

REPORT INFORMATION
  Report Type: 
  Country: None (occurrence: None)
  Receive Date: 20101016
  Receipt Date: 20101013
  Transmission Date: 20110411
  Serious: Yes (Hospitalization)
  Sender: FDA-Public Use
  Company Number: FR-WYE-G06805810

PATIENT
  Age: 50 Year
  Sex: Female

DRUGS (4)
  1. GEMTUZUMAB OZOGAMICIN [Suspect]
     Indication: LEUKAEMIA
     Dosage: UNKNOWN
     Route: 042
     Dates: start: 20100101
  2. DAUNORUBICIN HCL [Suspect]
     Indication: LEUKAEMIA
     Dosage: UNKNOWN
     Route: 042
     Dates: start: 20100101
  3. ARACYTINE [Suspect]
     Indication: LEUKAEMIA
     Dosage: UNKNOWN
     Route: 042
     Dates: start: 20100101
  4. ADRIAMYCIN PFS [Suspect]
     Indication: LEUKAEMIA
     Dosage: UNKNOWN
     Route: 042
     Dates: start: 20100101

REACTIONS (1)
  - TREMOR [None]
